FAERS Safety Report 9307512 (Version 1)
Quarter: 2013Q2

REPORT INFORMATION
  Report Type: Report from Study
  Country: CA (occurrence: CA)
  Receive Date: 20130524
  Receipt Date: 20130524
  Transmission Date: 20140414
  Serious: Yes (Other)
  Sender: FDA-Public Use
  Company Number: CA-JNJFOC-20130513551

PATIENT
  Sex: Female
  Weight: 86 kg

DRUGS (10)
  1. REMICADE [Suspect]
     Indication: PSORIASIS
     Route: 042
     Dates: start: 20130228
  2. REMICADE [Suspect]
     Indication: PSORIASIS
     Route: 042
     Dates: start: 20130412, end: 20130515
  3. PLAVIX [Concomitant]
     Route: 065
  4. CRESTOR [Concomitant]
     Route: 065
  5. DIOVAN [Concomitant]
     Route: 065
  6. NOVOPRANOL [Concomitant]
     Route: 065
  7. CELEXA [Concomitant]
     Dosage: AM
     Route: 065
  8. PULMICORT [Concomitant]
     Route: 065
  9. NOVORAPID [Concomitant]
     Route: 065
  10. LANTUS [Concomitant]
     Route: 065

REACTIONS (2)
  - Fibromyalgia [Unknown]
  - Drug ineffective [Unknown]
